FAERS Safety Report 4777309-5 (Version None)
Quarter: 2005Q3

REPORT INFORMATION
  Report Type: 
  Country: None (occurrence: None)
  Receive Date: 20050922
  Receipt Date: 20050922
  Transmission Date: 20060218
  Serious: Yes (Other)
  Sender: FDA-Public Use
  Company Number: None

PATIENT
  Sex: Male
  Weight: 98.0677 kg

DRUGS (11)
  1. GEMCITIBINE     100MG/ML      LILLY [Suspect]
     Indication: PANCREATIC CARCINOMA
     Dosage: 1000MG/M2    DAY 1 + 15    IV DRIP
     Route: 041
     Dates: start: 20041103, end: 20050907
  2. CISPLATIN [Suspect]
     Indication: PANCREATIC CARCINOMA
     Dosage: 20MG/M2    DAY 1 + 15      IV DRIP
     Route: 041
     Dates: start: 20041103, end: 20050907
  3. BEVACIZUMAB       25MG/ML       GENENTECH [Suspect]
     Indication: PANCREATIC CARCINOMA
     Dosage: 10MG/KG    DAY 1 + 15    IV DRIP
     Route: 041
     Dates: start: 20041103, end: 20050907
  4. NORVASC [Concomitant]
  5. ARANESP [Concomitant]
  6. GLYBURIDE [Concomitant]
  7. FISH OIL CAPS [Concomitant]
  8. M.V.I. [Concomitant]
  9. FOLIC ACID [Concomitant]
  10. VIT E [Concomitant]
  11. RESTORIL [Concomitant]

REACTIONS (2)
  - HAEMATOCRIT DECREASED [None]
  - HAEMOGLOBIN DECREASED [None]
